FAERS Safety Report 8090619-1 (Version None)
Quarter: 2012Q1

REPORT INFORMATION
  Report Type: 
  Country: None (occurrence: None)
  Receive Date: 20120129
  Receipt Date: 20111114
  Transmission Date: 20120608
  Serious: No
  Sender: FDA-Public Use
  Company Number: US-ABBOTT-11P-163-0873989-00

PATIENT
  Age: 50 Year
  Sex: Male

DRUGS (11)
  1. VIMOVA [Concomitant]
     Indication: ARTHRITIS
     Route: 048
  2. ASCORBIC ACID [Concomitant]
     Indication: ANTIOXIDANT THERAPY
     Route: 048
  3. METOPROLOL TARTRATE [Concomitant]
     Indication: HYPERTENSION
     Route: 048
  4. GLIPIZIDE [Concomitant]
     Indication: DIABETES MELLITUS
     Dosage: 1/2 TAB IN MORNING AND 1 TAB IN EVENING
     Route: 048
  5. METFFORMIN HYDROCHLORIDE [Concomitant]
     Indication: DIABETES MELLITUS
     Dosage: 1/2 TAB IN MORNING AND 1 TAB IN EVENING
     Route: 048
  6. ASPIRIN [Concomitant]
     Indication: ANTICOAGULANT THERAPY
     Route: 048
  7. COLACE [Concomitant]
     Indication: CONSTIPATION PROPHYLAXIS
     Dosage: 100 MG /TAB; 200 MG DAILY
     Route: 048
  8. HUMIRA [Suspect]
     Indication: RHEUMATOID ARTHRITIS
     Dosage: INTERRUPTED DUE TO AE
     Dates: start: 20111026, end: 20111026
  9. LISINOPRIL [Concomitant]
     Indication: HYPERTENSION
     Route: 048
  10. LISINOPRIL [Concomitant]
     Indication: BLOOD PRESSURE
  11. SIMVASTATIN [Concomitant]
     Indication: BLOOD CHOLESTEROL INCREASED
     Dosage: 40 MG
     Route: 048

REACTIONS (1)
  - URTICARIA [None]
